FAERS Safety Report 8953735 (Version 1)
Quarter: 2012Q4

REPORT INFORMATION
  Report Type: 
  Country: AU (occurrence: AU)
  Receive Date: 20121206
  Receipt Date: 20121206
  Transmission Date: 20130627
  Serious: Yes (Other)
  Sender: FDA-Public Use
  Company Number: AU-PFIZER INC-2012270066

PATIENT
  Age: 50 Year
  Sex: Female

DRUGS (3)
  1. ZITHROMAX [Suspect]
     Indication: PNEUMONIA
     Dosage: 500 mg bolus over less than three minutes
     Route: 040
  2. TAMIFLU [Concomitant]
     Indication: ANTIVIRAL PROPHYLAXIS
     Dosage: 75 mg, 2x/day
     Route: 048
  3. CEFTRIAXONE [Concomitant]
     Indication: PNEUMONIA
     Dosage: 1 g, 1x/day
     Route: 042

REACTIONS (6)
  - Wrong technique in drug usage process [Recovered/Resolved]
  - Blood pressure decreased [Recovered/Resolved]
  - Presyncope [Recovered/Resolved]
  - Vision blurred [Recovered/Resolved]
  - Paraesthesia oral [Recovered/Resolved]
  - Paraesthesia [Recovered/Resolved]
